FAERS Safety Report 11054702 (Version 1)
Quarter: 2015Q2

REPORT INFORMATION
  Report Type: Spontaneous
  Country: JP (occurrence: None)
  Receive Date: 20150420
  Receipt Date: 20150420
  Transmission Date: 20150821
  Serious: Yes (Other)
  Sender: FDA-Public Use
  Company Number: ADR-2015-00738

PATIENT
  Age: 25 Year
  Sex: Male

DRUGS (1)
  1. GABALON INTRATHECAL [Suspect]
     Active Substance: BACLOFEN
     Indication: CEREBRAL PALSY
     Dates: start: 20141225

REACTIONS (3)
  - Procedural complication [None]
  - Abdominal injury [None]
  - Device damage [None]
